FAERS Safety Report 5460558-0 (Version None)
Quarter: 2007Q3

REPORT INFORMATION
  Report Type: 
  Country: None (occurrence: None)
  Receive Date: 20070919
  Receipt Date: 20070917
  Transmission Date: 20080115
  Serious: Yes (Other)
  Sender: FDA-Public Use
  Company Number: US-ASTRAZENECA-2007UW14191

PATIENT
  Age: 48 Year
  Sex: Female

DRUGS (6)
  1. CRESTOR [Suspect]
     Route: 048
     Dates: start: 20070308, end: 20070528
  2. ALEVE [Suspect]
     Indication: ARTHRALGIA
  3. CIPROFLOXACIN [Suspect]
     Indication: URINARY TRACT INFECTION
  4. LISINOPRIL [Concomitant]
  5. HYDROCHLOROTHIAZIDE [Concomitant]
  6. CIPROFLOXACIN [Concomitant]
     Dates: start: 20070426

REACTIONS (11)
  - BLOOD CREATINE PHOSPHOKINASE INCREASED [None]
  - FATIGUE [None]
  - GLOMERULAR FILTRATION RATE DECREASED [None]
  - LIVER FUNCTION TEST ABNORMAL [None]
  - MENTAL IMPAIRMENT [None]
  - MYALGIA [None]
  - NEPHRITIS INTERSTITIAL [None]
  - PROTEINURIA [None]
  - RASH MACULAR [None]
  - RENAL FAILURE ACUTE [None]
  - URINARY TRACT INFECTION [None]
